FAERS Safety Report 17805239 (Version 1)
Quarter: 2020Q2

REPORT INFORMATION
  Report Type: Spontaneous
  Country: IN (occurrence: IN)
  Receive Date: 20200520
  Receipt Date: 20200520
  Transmission Date: 20200714
  Serious: Yes (Other)
  Sender: FDA-Public Use
  Company Number: IN-IPCA LABORATORIES LIMITED-IPC-2020-IN-001602

PATIENT

DRUGS (3)
  1. CHLOROQUINE. [Suspect]
     Active Substance: CHLOROQUINE
     Dosage: 300 MILLIGRAM, QD
     Route: 065
  2. CHLOROQUINE. [Suspect]
     Active Substance: CHLOROQUINE
     Indication: PLASMODIUM FALCIPARUM INFECTION
     Dosage: 600 MILLIGRAM, QD
     Route: 065
  3. SULFADOXINE PYRIMETHAMINE [Concomitant]
     Active Substance: PYRIMETHAMINE\SULFADOXINE
     Indication: PLASMODIUM FALCIPARUM INFECTION
     Dosage: 1500 MG/75 MG
     Route: 065

REACTIONS (1)
  - Abnormal behaviour [Unknown]
